FAERS Safety Report 7235906-1 (Version None)
Quarter: 2011Q1

REPORT INFORMATION
  Report Type: 
  Country: None (occurrence: None)
  Receive Date: 20110120
  Receipt Date: 20110111
  Transmission Date: 20110831
  Serious: Yes (Other)
  Sender: FDA-Public Use
  Company Number: US-ASTRAZENECA-2011SE01968

PATIENT
  Sex: Female

DRUGS (1)
  1. ZOLADEX [Suspect]
     Indication: BREAST CANCER
     Dosage: 3.6 MG EVERY 28 DAYS
     Route: 058

REACTIONS (1)
  - BREAST RECONSTRUCTION [None]
